FAERS Safety Report 8423781-9 (Version None)
Quarter: 2012Q2

REPORT INFORMATION
  Report Type: 
  Country: None (occurrence: None)
  Receive Date: 20120608
  Receipt Date: 20120529
  Transmission Date: 20120825
  Serious: No
  Sender: FDA-Public Use
  Company Number: US-ASTRAZENECA-2012SE35861

PATIENT
  Age: 65 Year
  Sex: Female

DRUGS (1)
  1. TOPROL-XL [Suspect]
     Route: 048

REACTIONS (2)
  - HYPERKERATOSIS LENTICULARIS PERSTANS [None]
  - CHRONIC OBSTRUCTIVE PULMONARY DISEASE [None]
